FAERS Safety Report 9625562 (Version 1)
Quarter: 2013Q4

REPORT INFORMATION
  Report Type: Report from Study
  Country: US (occurrence: US)
  Receive Date: 20131016
  Receipt Date: 20131016
  Transmission Date: 20140711
  Serious: Yes (Other)
  Sender: FDA-Public Use
  Company Number: PHEH2013US021195

PATIENT
  Age: 39 Year
  Sex: Male
  Weight: 60.77 kg

DRUGS (5)
  1. GILENYA [Suspect]
     Indication: MULTIPLE SCLEROSIS
     Dosage: 0.5 MG, QD
     Route: 048
     Dates: start: 20131009
  2. TOPIRAMATE [Concomitant]
     Dosage: 200 MG, QW2
  3. TIZANIDINE [Concomitant]
     Dosage: 4 MG, QID, AS NEEDED
  4. SUMATRIPTAN [Concomitant]
     Dosage: 25 MG, PRN
  5. ADDERALL [Concomitant]
     Dosage: 20 MG, TID

REACTIONS (5)
  - Heart rate increased [Unknown]
  - Sinus bradycardia [Unknown]
  - Blood pressure increased [Unknown]
  - Paraesthesia [Recovered/Resolved]
  - Dizziness [Recovered/Resolved]
